APPROVED DRUG PRODUCT: CLINDAMYCIN HYDROCHLORIDE
Active Ingredient: CLINDAMYCIN HYDROCHLORIDE
Strength: EQ 300MG BASE
Dosage Form/Route: CAPSULE;ORAL
Application: A063029 | Product #002
Applicant: COSETTE PHARMACEUTICALS INC
Approved: Aug 5, 2005 | RLD: No | RS: No | Type: DISCN